FAERS Safety Report 23384170 (Version 3)
Quarter: 2024Q1

REPORT INFORMATION
  Report Type: Spontaneous
  Country: CA (occurrence: CA)
  Receive Date: 20240109
  Receipt Date: 20240306
  Transmission Date: 20240409
  Serious: Yes (Hospitalization, Other)
  Sender: FDA-Public Use
  Company Number: CA-PFIZER INC-202300333494

PATIENT
  Age: 36 Year
  Sex: Female

DRUGS (3)
  1. ABRILADA [Suspect]
     Active Substance: ADALIMUMAB-AFZB
     Indication: Crohn^s disease
     Dosage: 1 DF WK0: 160 MG, WK2: 80MG, THEN 40MG EVERY OTHER WK STARTING WK4.PREFILLED PEN.
     Route: 058
     Dates: start: 20230928
  2. ABRILADA [Suspect]
     Active Substance: ADALIMUMAB-AFZB
     Dosage: 1 DF WK0: 160 MG, WK2: 80MG, THEN 40MG EVERY OTHER WK STARTING WK4.PREFILLED PEN.
     Route: 058
     Dates: start: 2023
  3. ABRILADA [Suspect]
     Active Substance: ADALIMUMAB-AFZB
     Dosage: 40 MG, WEEKLY, FOR 12 MONTHS, PREFILLED PEN NOT STARTED YET
     Route: 058

REACTIONS (3)
  - Skin infection [Recovered/Resolved]
  - Rash [Unknown]
  - Off label use [Unknown]

NARRATIVE: CASE EVENT DATE: 20230101
